FAERS Safety Report 5829768-4 (Version None)
Quarter: 2008Q3

REPORT INFORMATION
  Report Type: 
  Country: None (occurrence: None)
  Receive Date: 20080801
  Receipt Date: 20080724
  Transmission Date: 20090109
  Serious: Yes (Hospitalization)
  Sender: FDA-Public Use
  Company Number: FR-JNJFOC-20080705641

PATIENT
  Sex: Female

DRUGS (5)
  1. HALDOL [Suspect]
     Indication: HISTRIONIC PERSONALITY DISORDER
     Route: 048
  2. ASPIRIN [Concomitant]
     Indication: ATRIAL FIBRILLATION
     Route: 065
  3. CORDARONE [Concomitant]
     Indication: ATRIAL FIBRILLATION
     Route: 065
  4. LEVOTHYROX [Concomitant]
     Indication: HYPOTHYROIDISM
     Route: 065
  5. MIRTAZAPINE [Concomitant]
     Indication: DEPRESSION
     Route: 065

REACTIONS (2)
  - APTYALISM [None]
  - DYSKINESIA [None]
